FAERS Safety Report 9058653 (Version 1)
Quarter: 2013Q1

REPORT INFORMATION
  Report Type: Spontaneous
  Country: US (occurrence: US)
  Receive Date: 20130204
  Receipt Date: 20130204
  Transmission Date: 20140127
  Serious: No
  Sender: FDA-Public Use
  Company Number: US-GLAXOSMITHKLINE-A0997849A

PATIENT
  Age: 56 Year
  Sex: Female

DRUGS (2)
  1. HORIZANT [Suspect]
     Indication: MIGRAINE PROPHYLAXIS
     Dosage: 1200MG PER DAY
     Route: 048
     Dates: start: 20110215
  2. LORAZEPAM [Concomitant]

REACTIONS (1)
  - Constipation [Unknown]
